FAERS Safety Report 6144972-6 (Version None)
Quarter: 2009Q2

REPORT INFORMATION
  Report Type: 
  Country: None (occurrence: None)
  Receive Date: 20090402
  Receipt Date: 20090202
  Transmission Date: 20091009
  Serious: No
  Sender: FDA-Public Use
  Company Number: 1000003772

PATIENT
  Age: 57 Year
  Sex: Male
  Weight: 104.3273 kg

DRUGS (2)
  1. BYSTOLIC [Suspect]
     Indication: HYPERTENSION
     Dosage: 10 MG (10 MG, 1 IN 1 D), ORAL; 40 MG (20 MG, 2 IN 1 D), ORAL
     Route: 048
     Dates: start: 20090109, end: 20090129
  2. BYSTOLIC [Suspect]
     Indication: HYPERTENSION
     Dosage: 10 MG (10 MG, 1 IN 1 D), ORAL; 40 MG (20 MG, 2 IN 1 D), ORAL
     Route: 048
     Dates: start: 20090130

REACTIONS (8)
  - ABDOMINAL DISCOMFORT [None]
  - ABNORMAL DREAMS [None]
  - DYSGEUSIA [None]
  - HEADACHE [None]
  - HEART RATE DECREASED [None]
  - MEMORY IMPAIRMENT [None]
  - TINNITUS [None]
  - WEIGHT DECREASED [None]
